FAERS Safety Report 7764192-9 (Version None)
Quarter: 2011Q3

REPORT INFORMATION
  Report Type: 
  Country: None (occurrence: None)
  Receive Date: 20110921
  Receipt Date: 20110912
  Transmission Date: 20111222
  Serious: Yes (Disabling)
  Sender: FDA-Public Use
  Company Number: US-US-EMD SERONO, INC.-7083012

PATIENT
  Sex: Female

DRUGS (1)
  1. REBIF [Suspect]
     Indication: PRODUCT USED FOR UNKNOWN INDICATION
     Route: 058
     Dates: start: 20101109

REACTIONS (7)
  - INJECTION SITE REACTION [None]
  - VERTIGO [None]
  - MYALGIA [None]
  - CHILLS [None]
  - DIZZINESS [None]
  - SCOTOMA [None]
  - PYREXIA [None]
